FAERS Safety Report 19836742 (Version 1)
Quarter: 2021Q3

REPORT INFORMATION
  Report Type: Report from Study
  Country: US (occurrence: US)
  Receive Date: 20210916
  Receipt Date: 20210916
  Transmission Date: 20211014
  Serious: Yes (Other)
  Sender: FDA-Public Use
  Company Number: US-MTPC-MTDA2021-0022073

PATIENT
  Sex: Female

DRUGS (1)
  1. EDARAVONE INJ [Suspect]
     Active Substance: EDARAVONE
     Indication: AMYOTROPHIC LATERAL SCLEROSIS
     Dosage: STANDARD DOSING
     Route: 065

REACTIONS (5)
  - Feeling abnormal [Unknown]
  - Autoimmune disorder [Unknown]
  - Myalgia [Unknown]
  - Headache [Unknown]
  - Motion sickness [Unknown]
